FAERS Safety Report 9011851 (Version 3)
Quarter: 2013Q1

REPORT INFORMATION
  Report Type: Spontaneous
  Country: FR (occurrence: FR)
  Receive Date: 20130112
  Receipt Date: 20130207
  Transmission Date: 20140127
  Serious: Yes (Other)
  Sender: FDA-Public Use
  Company Number: FR-US-EMD SERONO, INC.-7186072

PATIENT
  Age: 40 Year
  Sex: Female

DRUGS (3)
  1. CETROTIDE [Suspect]
     Indication: IN VITRO FERTILISATION
     Route: 058
     Dates: start: 20120225, end: 20120302
  2. MENOPUR [Suspect]
     Indication: IN VITRO FERTILISATION
     Route: 058
     Dates: start: 20120221, end: 20120228
  3. GONADOTROPHIN, CHORIONIC [Suspect]
     Indication: IN VITRO FERTILISATION
     Route: 030
     Dates: start: 20120302, end: 20120302

REACTIONS (2)
  - Ovarian hyperstimulation syndrome [Recovered/Resolved]
  - Abdominal pain [Recovered/Resolved]
